FAERS Safety Report 18902611 (Version 1)
Quarter: 2021Q1

REPORT INFORMATION
  Report Type: Spontaneous
  Country: JP (occurrence: JP)
  Receive Date: 20210217
  Receipt Date: 20210217
  Transmission Date: 20210420
  Serious: Yes (Hospitalization)
  Sender: FDA-Public Use
  Company Number: NVSJ2021JP002280

PATIENT

DRUGS (1)
  1. CO?DIOVAN [Suspect]
     Active Substance: HYDROCHLOROTHIAZIDE\VALSARTAN
     Indication: PRODUCT USED FOR UNKNOWN INDICATION
     Dosage: 1DF:VALSARTAN 80 MG, HYDROCHLOROTHIAZIDE 12.5 MG
     Route: 048

REACTIONS (2)
  - Dysphagia [Unknown]
  - Pneumonia aspiration [Unknown]
